FAERS Safety Report 13660909 (Version 1)
Quarter: 2017Q2

REPORT INFORMATION
  Report Type: Spontaneous
  Country: AU (occurrence: AU)
  Receive Date: 20170616
  Receipt Date: 20170616
  Transmission Date: 20170830
  Serious: Yes (Hospitalization)
  Sender: FDA-Public Use
  Company Number: AU-MYLANLABS-2017M1036287

PATIENT

DRUGS (4)
  1. FLUDROCORTISONE [Concomitant]
     Active Substance: FLUDROCORTISONE
     Indication: ORTHOSTATIC HYPOTENSION
     Route: 065
  2. MIRTAZAPINE. [Suspect]
     Active Substance: MIRTAZAPINE
     Indication: RESTLESS LEGS SYNDROME
     Dosage: 360 MG
     Route: 048
  3. PRAMIPEXOLE. [Suspect]
     Active Substance: PRAMIPEXOLE
     Indication: RESTLESS LEGS SYNDROME
     Dosage: 3 MG
     Route: 048
  4. VENLAFAXINE [Suspect]
     Active Substance: VENLAFAXINE HYDROCHLORIDE
     Indication: RESTLESS LEGS SYNDROME
     Dosage: 2250 MG
     Route: 048

REACTIONS (11)
  - Suicidal ideation [Recovered/Resolved]
  - Agitation [Recovered/Resolved]
  - Condition aggravated [Recovered/Resolved]
  - Dizziness postural [Recovered/Resolved]
  - Hallucination, visual [Recovered/Resolved]
  - Overdose [Recovered/Resolved]
  - Sinus tachycardia [Recovered/Resolved]
  - Myoclonus [Recovered/Resolved]
  - Urinary retention [Recovered/Resolved]
  - Confusional state [Recovered/Resolved]
  - Ataxia [Recovered/Resolved]
